FAERS Safety Report 5860596-X (Version None)
Quarter: 2008Q3

REPORT INFORMATION
  Report Type: 
  Country: None (occurrence: None)
  Receive Date: 20080826
  Receipt Date: 20080808
  Transmission Date: 20090109
  Serious: Yes (Death)
  Sender: FDA-Public Use
  Company Number: 2008AL003645

PATIENT
  Age: 84 Year
  Sex: Male

DRUGS (15)
  1. DIGOXIN [Suspect]
     Indication: ATRIAL FIBRILLATION
     Dosage: 0.125 MG, DAILY, PO
     Route: 048
     Dates: start: 20080107, end: 20080130
  2. ALBUTEROL [Concomitant]
  3. COUMADIN [Concomitant]
  4. DILTIAZEM HCL [Concomitant]
  5. DIFLUCAN [Concomitant]
  6. NITROGLYCERIN [Concomitant]
  7. LOMOTIL [Concomitant]
  8. IRON SULFATETHIAMIN COMPOUND TAB [Concomitant]
  9. LASIX [Concomitant]
  10. LOID [Concomitant]
  11. PRILOSEC [Concomitant]
  12. SODIUM BICAR [Concomitant]
  13. TESTOSTERONE [Concomitant]
  14. SPIRIVA [Concomitant]
  15. MULTI-VITAMINS [Concomitant]

REACTIONS (7)
  - ATRIAL FIBRILLATION [None]
  - CANDIDURIA [None]
  - CARDIAC FAILURE [None]
  - CARDIAC FLUTTER [None]
  - CONDITION AGGRAVATED [None]
  - LUNG DISORDER [None]
  - RENAL FAILURE [None]
